FAERS Safety Report 14922470 (Version 4)
Quarter: 2019Q1

REPORT INFORMATION
  Report Type: Spontaneous
  Country: US (occurrence: US)
  Receive Date: 20180522
  Receipt Date: 20190225
  Transmission Date: 20190417
  Serious: Yes (Hospitalization, Other)
  Sender: FDA-Public Use
  Company Number: US-PFIZER INC-2018207525

PATIENT
  Age: 50 Year
  Sex: Female

DRUGS (1)
  1. XELJANZ XR [Suspect]
     Active Substance: TOFACITINIB CITRATE
     Dosage: 11 MG, DAILY (X30)
     Route: 048
     Dates: start: 20180503, end: 20180727

REACTIONS (12)
  - Paralysis [Unknown]
  - Abdominal pain [Unknown]
  - Pain [Unknown]
  - Headache [Unknown]
  - Pharyngitis [Unknown]
  - Burning sensation [Unknown]
  - Abdominal discomfort [Unknown]
  - Discharge [Unknown]
  - Constipation [Unknown]
  - Fatigue [Unknown]
  - Nausea [Unknown]
  - Skin lesion [Unknown]

NARRATIVE: CASE EVENT DATE: 20180517
